FAERS Safety Report 13964422 (Version 1)
Quarter: 2017Q3

REPORT INFORMATION
  Report Type: Spontaneous
  Country: US (occurrence: US)
  Receive Date: 20170913
  Receipt Date: 20170913
  Transmission Date: 20171128
  Serious: Yes (Death)
  Sender: FDA-Public Use
  Company Number: US-LPDUSPRD-20171255

PATIENT
  Age: 40 Year
  Sex: Female

DRUGS (1)
  1. SODIUM THIOSULFATE INJECTION, USP (1019-05) [Suspect]
     Active Substance: SODIUM THIOSULFATE
     Dosage: 25G/DAY
     Route: 065

REACTIONS (1)
  - Toxicity to various agents [Fatal]
